FAERS Safety Report 22040291 (Version 1)
Quarter: 2023Q1

REPORT INFORMATION
  Report Type: Spontaneous
  Country: US (occurrence: US)
  Receive Date: 20230227
  Receipt Date: 20230227
  Transmission Date: 20230418
  Serious: Yes (Hospitalization)
  Sender: FDA-Public Use
  Company Number: US-JNJFOC-20230249082

PATIENT
  Sex: Female

DRUGS (2)
  1. XARELTO [Suspect]
     Active Substance: RIVAROXABAN
     Indication: Thrombosis
     Route: 048
  2. ACTEMRA [Concomitant]
     Active Substance: TOCILIZUMAB

REACTIONS (2)
  - Pneumonia bacterial [Unknown]
  - Gingival bleeding [Unknown]
